FAERS Safety Report 23259578 (Version 5)
Quarter: 2024Q1

REPORT INFORMATION
  Report Type: Report from Study
  Country: DE (occurrence: DE)
  Receive Date: 20231204
  Receipt Date: 20240111
  Transmission Date: 20240410
  Serious: Yes (Hospitalization)
  Sender: FDA-Public Use
  Company Number: DE-TAKEDA-2023TUS114994

PATIENT
  Age: 56 Year
  Sex: Female

DRUGS (19)
  1. LANADELUMAB [Suspect]
     Active Substance: LANADELUMAB
     Indication: Hereditary angioedema
     Dosage: 300 MILLIGRAM, Q2WEEKS
     Route: 065
     Dates: start: 20220616
  2. PANTOPRAZOLE SODIUM [Concomitant]
     Active Substance: PANTOPRAZOLE SODIUM
     Indication: Gastrooesophageal reflux disease
     Dosage: 40 MILLIGRAM
     Route: 048
     Dates: start: 19900101, end: 20231031
  3. PANTOPRAZOLE SODIUM [Concomitant]
     Active Substance: PANTOPRAZOLE SODIUM
     Dosage: 20 MILLIGRAM
     Route: 048
     Dates: start: 20231101
  4. NEBIVOLOL [Concomitant]
     Active Substance: NEBIVOLOL
     Indication: Hypertonia
     Dosage: 7.5 MILLIGRAM
     Route: 048
     Dates: start: 20160101, end: 20231031
  5. NEBIVOLOL [Concomitant]
     Active Substance: NEBIVOLOL
     Indication: Hypertonia
     Dosage: 5 MILLIGRAM
     Route: 048
     Dates: start: 20231101
  6. OMALIZUMAB [Concomitant]
     Active Substance: OMALIZUMAB
     Indication: Chronic spontaneous urticaria
     Dosage: 300 MILLIGRAM
     Route: 058
     Dates: start: 20210401, end: 20220901
  7. OMALIZUMAB [Concomitant]
     Active Substance: OMALIZUMAB
     Indication: Urticaria
     Dosage: 450 MILLIGRAM
     Route: 058
     Dates: start: 20220902, end: 20221221
  8. OMALIZUMAB [Concomitant]
     Active Substance: OMALIZUMAB
     Dosage: 600 MILLIGRAM
     Route: 058
     Dates: start: 20221222
  9. POTASSIUM IODIDE [Concomitant]
     Active Substance: POTASSIUM IODIDE
     Indication: Goitre
     Dosage: 200 MICROGRAM
     Route: 048
     Dates: start: 20200101
  10. CETIRIZINE HYDROCHLORIDE [Concomitant]
     Active Substance: CETIRIZINE HYDROCHLORIDE
     Indication: Chronic spontaneous urticaria
     Dosage: 20 MILLIGRAM
     Route: 048
     Dates: start: 20190201, end: 20221221
  11. BUDESONIDE [Concomitant]
     Active Substance: BUDESONIDE
     Indication: Asthma
     Dosage: 1 DOSAGE FORM
     Route: 050
     Dates: start: 20220601
  12. DIMETHINDENE [Concomitant]
     Active Substance: DIMETHINDENE
     Indication: Urticaria
     Dosage: 20 MILLILITER
     Route: 048
     Dates: start: 20220815, end: 20220815
  13. CELESTAMINE [Concomitant]
     Active Substance: BETAMETHASONE\DEXCHLORPHENIRAMINE MALEATE
     Indication: Urticaria
     Dosage: 30 MILLILITER
     Route: 048
     Dates: start: 20220815, end: 20220815
  14. RUPATADINE FUMARATE [Concomitant]
     Active Substance: RUPATADINE FUMARATE
     Indication: Urticaria
     Dosage: 40 MILLIGRAM
     Route: 048
     Dates: start: 20220802, end: 20230216
  15. RUPATADINE FUMARATE [Concomitant]
     Active Substance: RUPATADINE FUMARATE
     Dosage: 20 MILLIGRAM
     Route: 048
     Dates: start: 20230217
  16. VITAMIN D [Concomitant]
     Active Substance: VITAMIN D NOS
     Indication: Vitamin D deficiency
     Dosage: 2000 INTERNATIONAL UNIT
     Route: 048
     Dates: start: 20221229
  17. FENOTEROL\IPRATROPIUM BROMIDE [Concomitant]
     Active Substance: FENOTEROL\IPRATROPIUM BROMIDE
     Indication: Asthma
     Dosage: UNK
     Route: 055
     Dates: start: 20000101
  18. BETAMETHASONE [Concomitant]
     Active Substance: BETAMETHASONE\BETAMETHASONE DIPROPIONATE
     Indication: Urticaria
     Dosage: 30 MILLILITER
     Route: 048
     Dates: start: 20220815, end: 20220815
  19. HYDROXYZINE [Concomitant]
     Active Substance: HYDROXYZINE HYDROCHLORIDE
     Indication: Urticaria
     Dosage: 25 MILLIGRAM
     Route: 048
     Dates: start: 20220101, end: 20220621

REACTIONS (4)
  - Ovarian cyst [Recovered/Resolved]
  - Visceroptosis [Recovered/Resolved]
  - Sleep apnoea syndrome [Recovering/Resolving]
  - Urinary incontinence [Recovered/Resolved with Sequelae]

NARRATIVE: CASE EVENT DATE: 20230531
